FAERS Safety Report 8349061-8 (Version None)
Quarter: 2012Q2

REPORT INFORMATION
  Report Type: 
  Country: None (occurrence: None)
  Receive Date: 20120510
  Receipt Date: 20120430
  Transmission Date: 20120825
  Serious: Yes (Other)
  Sender: FDA-Public Use
  Company Number: US-SANOFI-AVENTIS-2012SA020592

PATIENT
  Age: 80 Year
  Sex: Male
  Weight: 72.73 kg

DRUGS (14)
  1. ROSUVASTATIN CALCIUM [Concomitant]
  2. APIDRA [Suspect]
     Indication: TYPE 2 DIABETES MELLITUS
     Dosage: AT BREAKFAST DOSE:5 UNIT(S)
     Route: 058
     Dates: start: 20120201, end: 20120312
  3. LANTUS [Suspect]
     Indication: TYPE 2 DIABETES MELLITUS
     Dosage: DOSE:12 UNIT(S)
     Route: 058
  4. SOLOSTAR [Suspect]
  5. TAMSULOSIN HYDROCHLORIDE [Concomitant]
  6. METFORMIN HCL [Concomitant]
  7. VALSARTAN [Concomitant]
  8. APIDRA [Suspect]
     Dosage: AT BREAKFAST DOSE:15 UNIT(S)
     Route: 058
     Dates: start: 20120320, end: 20120323
  9. PIOGLITAZONE [Concomitant]
  10. APIDRA [Suspect]
     Dosage: AT BREAKFAST DOSE:10 UNIT(S)
     Route: 058
     Dates: start: 20120313, end: 20120319
  11. SOLOSTAR [Suspect]
     Indication: TYPE 2 DIABETES MELLITUS
     Dates: start: 20120101
  12. GLYNASE [Concomitant]
  13. METOPROLOL TARTRATE [Concomitant]
  14. SYNTHROID [Concomitant]

REACTIONS (5)
  - HYPOGLYCAEMIC COMA [None]
  - HYPERHIDROSIS [None]
  - CONFUSIONAL STATE [None]
  - DIPLOPIA [None]
  - BLOOD GLUCOSE INCREASED [None]
